FAERS Safety Report 5455256-3 (Version None)
Quarter: 2007Q3

REPORT INFORMATION
  Report Type: 
  Country: None (occurrence: None)
  Receive Date: 20070913
  Receipt Date: 20070913
  Transmission Date: 20080115
  Serious: Yes (Hospitalization)
  Sender: FDA-Public Use
  Company Number: None

PATIENT
  Age: 89 Year
  Sex: Male

DRUGS (1)
  1. ETODOLAC [Suspect]
     Indication: OSTEOARTHRITIS
     Dosage: 300MG BID PO
     Route: 048
     Dates: start: 20010103, end: 20070831

REACTIONS (8)
  - DIVERTICULUM [None]
  - GASTRIC ULCER [None]
  - GASTROINTESTINAL PAIN [None]
  - HAEMOGLOBIN DECREASED [None]
  - HIATUS HERNIA [None]
  - MELAENA [None]
  - OESOPHAGITIS [None]
  - PROCEDURAL COMPLICATION [None]
